FAERS Safety Report 5578561-9 (Version None)
Quarter: 2007Q4

REPORT INFORMATION
  Report Type: 
  Country: None (occurrence: None)
  Receive Date: 20071227
  Receipt Date: 20071212
  Transmission Date: 20080405
  Serious: Yes (Hospitalization, Disabling, Other)
  Sender: FDA-Public Use
  Company Number: 430022M07DEU

PATIENT
  Age: 56 Year
  Sex: Male

DRUGS (3)
  1. MITOXANTRONE HCL [Suspect]
     Indication: MULTIPLE SCLEROSIS
     Dosage: 27 MG, 1 IN 1 CYCLE, INTRAVENOUS , 18 MG, 1 IN 1 CYCLE, INTRAVENOUS
     Route: 042
     Dates: end: 20071001
  2. PREGABALIN [Concomitant]
  3. OXYBUTYNIN CHLORIDE [Concomitant]

REACTIONS (2)
  - DEEP VEIN THROMBOSIS [None]
  - POST THROMBOTIC SYNDROME [None]
